FAERS Safety Report 5266316-4 (Version None)
Quarter: 2007Q1

REPORT INFORMATION
  Report Type: 
  Country: None (occurrence: None)
  Receive Date: 20070315
  Receipt Date: 20070307
  Transmission Date: 20070707
  Serious: Yes (Other)
  Sender: FDA-Public Use
  Company Number: JP-ROCHE-485708

PATIENT
  Age: 6 Year
  Sex: Female

DRUGS (19)
  1. CELLCEPT [Suspect]
     Route: 048
     Dates: start: 20060302
  2. CELLCEPT [Suspect]
     Route: 048
     Dates: start: 20060718
  3. CELLCEPT [Suspect]
     Route: 048
     Dates: start: 20070206
  4. ENDOXAN [Concomitant]
  5. RITUXAN [Concomitant]
     Route: 041
  6. DIAMOX [Concomitant]
     Route: 048
     Dates: start: 20060302
  7. PREDNISOLONE [Concomitant]
     Route: 048
     Dates: start: 20060302
  8. BAKTAR [Concomitant]
     Route: 048
     Dates: start: 20060302
  9. NU-LOTAN [Concomitant]
     Route: 048
     Dates: start: 20060302
  10. ALFAROL [Concomitant]
     Route: 048
     Dates: start: 20060302
  11. ODRIC [Concomitant]
     Route: 048
     Dates: start: 20060302
  12. LOPEMIN [Concomitant]
     Route: 048
     Dates: start: 20060302
  13. LAC B [Concomitant]
     Route: 048
     Dates: start: 20060302
  14. MUCODYNE [Concomitant]
     Route: 048
     Dates: start: 20060302
  15. FERRIC PYROPHOSPHATE [Concomitant]
     Route: 048
     Dates: start: 20060527
  16. ERYTHROCIN [Concomitant]
     Route: 048
     Dates: start: 20060527
  17. PREDONINE [Concomitant]
     Route: 048
     Dates: start: 20060527, end: 20060527
  18. ECOLICIN [Concomitant]
     Route: 031
     Dates: start: 20060618
  19. ZOVIRAX [Concomitant]
     Route: 061
     Dates: start: 20061114

REACTIONS (1)
  - IMMUNOGLOBULINS DECREASED [None]
